FAERS Safety Report 14953160 (Version 1)
Quarter: 2018Q2

REPORT INFORMATION
  Report Type: Spontaneous
  Country: US (occurrence: US)
  Receive Date: 20180530
  Receipt Date: 20180530
  Transmission Date: 20180711
  Serious: No
  Sender: FDA-Public Use
  Company Number: US-BAYER-2018-095875

PATIENT
  Age: 56 Year
  Sex: Female
  Weight: 54 kg

DRUGS (12)
  1. MIRALAX [Suspect]
     Active Substance: POLYETHYLENE GLYCOL 3350
     Indication: GASTROINTESTINAL DISORDER
     Dosage: 1 DF, UNK
     Route: 048
     Dates: start: 201804
  2. OXYBUTON [OXYBUTYNIN HYDROCHLORIDE] [Concomitant]
  3. METFORMIN [Concomitant]
     Active Substance: METFORMIN HYDROCHLORIDE
  4. AMPYRA [Concomitant]
     Active Substance: DALFAMPRIDINE
  5. BACLOFEN. [Concomitant]
     Active Substance: BACLOFEN
  6. MACRODANTIN [Concomitant]
     Active Substance: NITROFURANTOIN
  7. MAGNESIUM CITRATE. [Concomitant]
     Active Substance: MAGNESIUM CITRATE
  8. BONIVA [Concomitant]
     Active Substance: IBANDRONATE SODIUM
  9. ADDERALL XR [Concomitant]
     Active Substance: AMPHETAMINE ASPARTATE\AMPHETAMINE SULFATE\DEXTROAMPHETAMINE SACCHARATE\DEXTROAMPHETAMINE SULFATE
  10. TIZANIDINE. [Concomitant]
     Active Substance: TIZANIDINE
  11. CRANBERRY. [Concomitant]
     Active Substance: CRANBERRY
  12. CITRACAL MAXIMUM PLUS [Concomitant]

REACTIONS (4)
  - Incorrect drug administration duration [Unknown]
  - Incorrect dose administered [Unknown]
  - Incorrect dose administered [Unknown]
  - Constipation [Unknown]

NARRATIVE: CASE EVENT DATE: 201804
